FAERS Safety Report 22037035 (Version 1)
Quarter: 2023Q1

REPORT INFORMATION
  Report Type: Spontaneous
  Country: CN (occurrence: CN)
  Receive Date: 20230226
  Receipt Date: 20230226
  Transmission Date: 20230418
  Serious: Yes (Other)
  Sender: FDA-Public Use
  Company Number: CN-JNJFOC-20230244658

PATIENT
  Sex: Male

DRUGS (1)
  1. ERLEADA [Suspect]
     Active Substance: APALUTAMIDE
     Indication: Prostate cancer
     Route: 048
     Dates: start: 2022, end: 20230218

REACTIONS (4)
  - Renal impairment [Unknown]
  - Prostate cancer metastatic [Unknown]
  - Weight decreased [Unknown]
  - Decreased appetite [Unknown]
